FAERS Safety Report 25551089 (Version 1)
Quarter: 2025Q3

REPORT INFORMATION
  Report Type: Spontaneous
  Country: JP (occurrence: JP)
  Receive Date: 20250714
  Receipt Date: 20250714
  Transmission Date: 20251020
  Serious: Yes (Hospitalization)
  Sender: AMGEN
  Company Number: JP-AMGEN-JPNSP2025112532

PATIENT
  Sex: Male

DRUGS (3)
  1. IMDELLTRA [Suspect]
     Active Substance: TARLATAMAB-DLLE
     Indication: Small cell lung cancer recurrent
     Route: 040
     Dates: start: 20250603
  2. IMDELLTRA [Suspect]
     Active Substance: TARLATAMAB-DLLE
     Route: 040
     Dates: start: 20250610
  3. IMDELLTRA [Suspect]
     Active Substance: TARLATAMAB-DLLE
     Route: 040
     Dates: start: 20250617

REACTIONS (4)
  - Cytokine release syndrome [Recovered/Resolved]
  - Oxygen saturation decreased [Recovering/Resolving]
  - Weight decreased [Recovering/Resolving]
  - Decreased appetite [Recovering/Resolving]

NARRATIVE: CASE EVENT DATE: 20250604
